FAERS Safety Report 8380587-7 (Version None)
Quarter: 2012Q1

REPORT INFORMATION
  Report Type: 
  Country: None (occurrence: None)
  Receive Date: 20120323
  Receipt Date: 20110404
  Transmission Date: 20120608
  Serious: Yes (Other)
  Sender: FDA-Public Use
  Company Number: 163-21880-11040570

PATIENT
  Age: 63 Year
  Sex: Female

DRUGS (7)
  1. REVLIMID [Suspect]
     Indication: AMYLOIDOSIS
     Dosage: 10 MG, 1 IN 1 D, PO
     Route: 048
     Dates: start: 20110318
  2. VITAMIN D [Concomitant]
  3. AMLODIPINE [Concomitant]
  4. RENA (NORGESIC TABLETS) [Concomitant]
  5. SYNTHROID [Concomitant]
  6. RENVELA [Concomitant]
  7. VELCADE [Concomitant]

REACTIONS (1)
  - PARAESTHESIA [None]
